FAERS Safety Report 9740423 (Version 2)
Quarter: 2014Q1

REPORT INFORMATION
  Report Type: Spontaneous
  Country: US (occurrence: US)
  Receive Date: 20131209
  Receipt Date: 20140311
  Transmission Date: 20141002
  Serious: Yes (Hospitalization)
  Sender: FDA-Public Use
  Company Number: US-BAXTER-2013BAX047855

PATIENT
  Age: 48 Year
  Sex: Female
  Weight: 77.3 kg

DRUGS (9)
  1. GAMMAGARD LIQUID [Suspect]
     Indication: HYPOGAMMAGLOBULINAEMIA
     Route: 042
     Dates: start: 201309
  2. TRAMADOL [Concomitant]
     Indication: HEADACHE
     Dates: start: 201312
  3. TRAMADOL [Concomitant]
     Indication: PREMEDICATION
  4. BENTYL [Concomitant]
     Indication: ABDOMINAL PAIN
     Route: 065
     Dates: start: 201312
  5. BENTYL [Concomitant]
     Indication: PREMEDICATION
  6. PERCOCET [Concomitant]
     Indication: PAIN
     Route: 065
     Dates: start: 201312
  7. PERCOCET [Concomitant]
     Indication: PREMEDICATION
  8. ZOFRAN [Concomitant]
     Indication: NAUSEA
     Route: 065
     Dates: start: 201312
  9. ZOFRAN [Concomitant]
     Indication: PREMEDICATION

REACTIONS (10)
  - Vomiting [Recovered/Resolved with Sequelae]
  - Diarrhoea [Recovered/Resolved with Sequelae]
  - Pyrexia [Recovered/Resolved]
  - Headache [Recovered/Resolved with Sequelae]
  - Chills [Recovered/Resolved with Sequelae]
  - Chromaturia [Recovered/Resolved with Sequelae]
  - Abdominal pain upper [Recovered/Resolved with Sequelae]
  - Chest pain [Recovered/Resolved]
  - Swelling face [Recovered/Resolved]
  - Nausea [Unknown]
